FAERS Safety Report 6571404-6 (Version None)
Quarter: 2010Q1

REPORT INFORMATION
  Report Type: 
  Country: None (occurrence: None)
  Receive Date: 20100205
  Receipt Date: 20100126
  Transmission Date: 20100710
  Serious: Yes (Hospitalization)
  Sender: FDA-Public Use
  Company Number: GR-ELI_LILLY_AND_COMPANY-GR201001000344

PATIENT
  Age: 77 Year
  Sex: Female
  Weight: 61 kg

DRUGS (9)
  1. LISPRO 25LIS75NPL [Suspect]
     Indication: TYPE 2 DIABETES MELLITUS
     Dosage: 4 U, 2/D
     Route: 058
     Dates: start: 20080606
  2. NORVASC [Concomitant]
     Indication: HYPERTENSION
     Dosage: 5 MG, DAILY (1/D)
     Route: 048
     Dates: start: 20080101
  3. ACCURETIC [Concomitant]
     Indication: HYPERTENSION
     Dosage: 20 MG + 12.5MG DAILY (1/D)
     Route: 048
     Dates: start: 20080101
  4. MINITRAN                           /00003201/ [Concomitant]
  5. PERPHENAZINE AND AMITRIPTYLINE HCL [Concomitant]
     Indication: DEPRESSION
     Dosage: 10+2MG
     Route: 048
     Dates: start: 20080101
  6. ENTACT                             /01588501/ [Concomitant]
     Indication: DEPRESSION
     Dosage: 20 MG, DAILY (1/D)
     Route: 048
     Dates: start: 20080101
  7. TAVOR [Concomitant]
     Indication: SEDATIVE THERAPY
     Dosage: 2.5 MG, DAILY (1/D)
     Route: 048
     Dates: start: 20080101
  8. SALOSPIR                           /00002701/ [Concomitant]
     Indication: CARDIOVASCULAR INSUFFICIENCY
     Dosage: 100 MG, DAILY (1/D)
     Route: 048
     Dates: start: 20080101
  9. GLUCOPHAGE [Concomitant]
     Indication: TYPE 2 DIABETES MELLITUS
     Dosage: 850 MG, 2/D
     Route: 048
     Dates: start: 20080201

REACTIONS (2)
  - JOINT ANKYLOSIS [None]
  - WRIST FRACTURE [None]
